FAERS Safety Report 5675197-6 (Version None)
Quarter: 2008Q2

REPORT INFORMATION
  Report Type: 
  Country: None (occurrence: None)
  Receive Date: 20080303
  Receipt Date: 20071213
  Transmission Date: 20081010
  Serious: Yes (Hospitalization, Other)
  Sender: FDA-Public Use
  Company Number: RB-8801-2007

PATIENT
  Sex: Male

DRUGS (3)
  1. SUBOXONE [Suspect]
     Indication: DRUG DEPENDENCE
     Dosage: 16 MG BID TRANSPLACENTAL
     Route: 064
     Dates: start: 20061101, end: 20061212
  2. SUBUTEX [Suspect]
     Indication: DRUG DEPENDENCE
     Dosage: 16 MG BID TRANSPLACENTAL
     Route: 064
     Dates: start: 20061213, end: 20070801
  3. MORPHINE [Concomitant]

REACTIONS (2)
  - DRUG EXPOSURE DURING PREGNANCY [None]
  - DRUG WITHDRAWAL SYNDROME NEONATAL [None]
